FAERS Safety Report 6605075-7 (Version None)
Quarter: 2010Q1

REPORT INFORMATION
  Report Type: 
  Country: None (occurrence: None)
  Receive Date: 20100226
  Receipt Date: 20100216
  Transmission Date: 20100710
  Serious: Yes (Other)
  Sender: FDA-Public Use
  Company Number: DE-JNJFOC-20091201052

PATIENT
  Age: 58 Year
  Sex: Female

DRUGS (1)
  1. SIMPONI [Suspect]
     Indication: RHEUMATOID ARTHRITIS
     Route: 058

REACTIONS (6)
  - CEREBROVASCULAR DISORDER [None]
  - CHILLS [None]
  - ELECTROCARDIOGRAM CHANGE [None]
  - GENERAL PHYSICAL HEALTH DETERIORATION [None]
  - OPTIC NERVE DISORDER [None]
  - PYREXIA [None]
